FAERS Safety Report 7620222-6 (Version None)
Quarter: 2011Q3

REPORT INFORMATION
  Report Type: 
  Country: None (occurrence: None)
  Receive Date: 20110719
  Receipt Date: 20110707
  Transmission Date: 20111222
  Serious: Yes (Hospitalization, Other)
  Sender: FDA-Public Use
  Company Number: PHHY2011NL61207

PATIENT
  Sex: Male

DRUGS (8)
  1. PRIMPERAN TAB [Concomitant]
  2. DEXAMETHASONE [Concomitant]
  3. ACETAMINOPHEN [Concomitant]
  4. ZOMETA [Suspect]
     Indication: METASTASES TO BONE
  5. PANTOPRAZOLE [Concomitant]
  6. VENTOLIN [Concomitant]
  7. ZOMETA [Suspect]
     Indication: LUNG NEOPLASM MALIGNANT
     Dosage: 4 MG/ 5 ML, PER 4 WEEKS
     Dates: start: 20110407
  8. TAMSULOSIN HYDROCHLORIDE [Concomitant]

REACTIONS (2)
  - DYSPNOEA [None]
  - ASCITES [None]
